FAERS Safety Report 7677174-2 (Version None)
Quarter: 2011Q3

REPORT INFORMATION
  Report Type: 
  Country: None (occurrence: None)
  Receive Date: 20110811
  Receipt Date: 20110728
  Transmission Date: 20111222
  Serious: Yes (Other)
  Sender: FDA-Public Use
  Company Number: US-ELI_LILLY_AND_COMPANY-US201108000689

PATIENT
  Sex: Female

DRUGS (4)
  1. FORTEO [Suspect]
     Indication: UPPER LIMB FRACTURE
     Dosage: 20 UG, QD
     Dates: start: 20110628
  2. VICODIN [Concomitant]
  3. METHOTREXATE [Concomitant]
  4. PROZAC [Concomitant]

REACTIONS (2)
  - OFF LABEL USE [None]
  - SQUAMOUS CELL CARCINOMA [None]
